FAERS Safety Report 17284950 (Version 1)
Quarter: 2020Q1

REPORT INFORMATION
  Report Type: Spontaneous
  Country: US (occurrence: US)
  Receive Date: 20200117
  Receipt Date: 20200117
  Transmission Date: 20200409
  Serious: Yes (Other)
  Sender: FDA-Public Use
  Company Number: US-ASTRAZENECA-2020SE05888

PATIENT
  Age: 59 Year
  Sex: Male

DRUGS (6)
  1. ASPIRIN. [Concomitant]
     Active Substance: ASPIRIN
     Dosage: 81.0MG UNKNOWN
  2. TRULICITY [Concomitant]
     Active Substance: DULAGLUTIDE
  3. CRESTOR [Suspect]
     Active Substance: ROSUVASTATIN CALCIUM
     Dosage: 40.0MG UNKNOWN
     Route: 048
  4. ACTOS [Concomitant]
     Active Substance: PIOGLITAZONE HYDROCHLORIDE
     Dosage: 15.0MG UNKNOWN
  5. BRILINTA [Suspect]
     Active Substance: TICAGRELOR
     Route: 048
     Dates: start: 20191119, end: 20191230
  6. TOUJEO [Concomitant]
     Active Substance: INSULIN GLARGINE

REACTIONS (6)
  - Blood cholesterol increased [Unknown]
  - Nightmare [Recovered/Resolved]
  - Diabetes mellitus [Unknown]
  - Angina unstable [Unknown]
  - Acute coronary syndrome [Unknown]
  - Middle insomnia [Recovered/Resolved]

NARRATIVE: CASE EVENT DATE: 20191119
